FAERS Safety Report 7801331-5 (Version None)
Quarter: 2011Q4

REPORT INFORMATION
  Report Type: 
  Country: None (occurrence: None)
  Receive Date: 20111006
  Receipt Date: 20111006
  Transmission Date: 20120403
  Serious: Yes (Hospitalization)
  Sender: FDA-Public Use
  Company Number: None

PATIENT
  Age: 69 Year
  Sex: Male
  Weight: 81.3 kg

DRUGS (24)
  1. ASPIRIN [Suspect]
     Indication: CORONARY ARTERY DISEASE
     Dosage: 81MG DAILY PO CHRONIC
     Route: 048
  2. HALDOL [Concomitant]
  3. FAMOTIDINE [Concomitant]
  4. VIT D3 [Concomitant]
  5. COZAAR [Concomitant]
  6. PREDNISONE [Suspect]
     Dosage: 81MG DAILY PO
     Route: 048
  7. M.V.I. [Concomitant]
  8. MERCAPTOPURINE [Concomitant]
  9. ACYCLOVIR [Concomitant]
  10. CLONIDINE [Concomitant]
  11. FLOMAX [Concomitant]
  12. TRAMADOL HCL [Concomitant]
  13. SIMVASTATIN [Concomitant]
  14. CITALOPRAM [Concomitant]
  15. FINASTERIDE [Concomitant]
  16. HYDROCHLOROTHIAZIDE [Concomitant]
  17. PREDNISONE [Concomitant]
  18. SOTALOL HCL [Concomitant]
  19. COUMADIN [Suspect]
     Indication: ATRIAL FIBRILLATION
     Dosage: 7.5MG DAILY PO RECENT
     Route: 048
  20. NORVASC [Concomitant]
  21. GLYOLZIDE [Concomitant]
  22. TOPROL-XL [Concomitant]
  23. VIT B12 [Concomitant]
  24. LOPERAMIDE HCL [Concomitant]

REACTIONS (4)
  - DIEULAFOY'S VASCULAR MALFORMATION [None]
  - ASTHENIA [None]
  - INTERNATIONAL NORMALISED RATIO INCREASED [None]
  - GASTRIC ULCER [None]
